FAERS Safety Report 11654158 (Version 3)
Quarter: 2015Q4

REPORT INFORMATION
  Report Type: Spontaneous
  Country: JP (occurrence: JP)
  Receive Date: 20151023
  Receipt Date: 20151201
  Transmission Date: 20160304
  Serious: Yes (Death, Life-Threatening, Hospitalization, Other)
  Sender: FDA-Public Use
  Company Number: JP-ROCHE-1512190

PATIENT
  Age: 58 Year
  Sex: Male
  Weight: 54 kg

DRUGS (5)
  1. ALOXI [Concomitant]
     Active Substance: PALONOSETRON HYDROCHLORIDE
     Indication: PROPHYLAXIS
     Route: 042
     Dates: start: 20141113, end: 20141113
  2. ELPLAT [Suspect]
     Active Substance: OXALIPLATIN
     Indication: RECTAL CANCER
     Dosage: DOSAGE IS UNCERTAIN.
     Route: 041
     Dates: start: 20141113, end: 20141113
  3. XELODA [Suspect]
     Active Substance: CAPECITABINE
     Indication: RECTAL CANCER
     Dosage: DOSAGE IS UNCERTAIN.?LAST DOSE PRIOR TO SERIOUS ADVERSE EVENT: DEC/2014
     Route: 048
     Dates: start: 20141113, end: 20141120
  4. ORGADRONE [Concomitant]
     Active Substance: DEXAMETHASONE SODIUM PHOSPHATE
     Indication: PROPHYLAXIS
     Route: 042
     Dates: start: 20141113, end: 20141113
  5. PROEMEND [Concomitant]
     Active Substance: FOSAPREPITANT
     Indication: PROPHYLAXIS
     Route: 042
     Dates: start: 20141113, end: 20141113

REACTIONS (10)
  - Stomatitis [Recovered/Resolved]
  - Diarrhoea [Recovered/Resolved]
  - Tachycardia [Unknown]
  - Bone marrow failure [Recovering/Resolving]
  - Atrial fibrillation [Not Recovered/Not Resolved]
  - Pyrexia [Unknown]
  - Depressed level of consciousness [Unknown]
  - Febrile neutropenia [Recovered/Resolved]
  - Pneumonia [Fatal]
  - Aspiration [Unknown]

NARRATIVE: CASE EVENT DATE: 20141120
